FAERS Safety Report 20053172 (Version 1)
Quarter: 2021Q4

REPORT INFORMATION
  Report Type: Spontaneous
  Country: US (occurrence: None)
  Receive Date: 20211109
  Receipt Date: 20211109
  Transmission Date: 20220303
  Serious: No
  Sender: FDA-Public Use
  Company Number: None

PATIENT

DRUGS (2)
  1. ALPROSTADIL [Suspect]
     Active Substance: ALPROSTADIL
     Route: 042
  2. DEVICE [Suspect]
     Active Substance: DEVICE

REACTIONS (5)
  - Incorrect product administration duration [None]
  - Apnoeic attack [None]
  - Device connection issue [None]
  - Device delivery system issue [None]
  - Wrong technique in device usage process [None]
